FAERS Safety Report 5104569-3 (Version None)
Quarter: 2006Q3

REPORT INFORMATION
  Report Type: 
  Country: None (occurrence: None)
  Receive Date: 20060911
  Receipt Date: 20060822
  Transmission Date: 20061208
  Serious: Yes (Other)
  Sender: FDA-Public Use
  Company Number: JP200608005145

PATIENT
  Age: 78 Year
  Sex: Female

DRUGS (2)
  1. EVISTA [Suspect]
     Indication: OSTEOPOROSIS POSTMENOPAUSAL
     Dosage: ORAL
     Route: 048
     Dates: start: 20050801
  2. ASPARA-CA                   (ASPARTATE CALCIUM) [Concomitant]

REACTIONS (2)
  - EYE PRURITUS [None]
  - INFECTION [None]
